FAERS Safety Report 9420093 (Version 1)
Quarter: 2013Q3

REPORT INFORMATION
  Report Type: Spontaneous
  Country: CO (occurrence: CO)
  Receive Date: 20130725
  Receipt Date: 20130725
  Transmission Date: 20140515
  Serious: Yes (Other)
  Sender: FDA-Public Use
  Company Number: CO-PFIZER INC-2013036862

PATIENT
  Age: 7 Year
  Sex: Female
  Weight: 16 kg

DRUGS (3)
  1. GENOTROPIN [Suspect]
     Indication: GROWTH HORMONE DEFICIENCY
     Dosage: 0.5 MG, 1X/DAY
     Route: 058
     Dates: start: 201211, end: 201302
  2. GENOTROPIN [Suspect]
     Dosage: 0.5 MG, 1X/DAY
     Route: 058
     Dates: start: 20130718
  3. LORATADINE [Concomitant]
     Indication: OTITIS MEDIA CHRONIC
     Dosage: 5 ML (1MG/ML), EVERY NIGHT
     Dates: start: 201305

REACTIONS (2)
  - Otitis media [Not Recovered/Not Resolved]
  - Condition aggravated [Not Recovered/Not Resolved]
